FAERS Safety Report 6296902-4 (Version None)
Quarter: 2009Q3

REPORT INFORMATION
  Report Type: 
  Country: None (occurrence: None)
  Receive Date: 20090804
  Receipt Date: 20090611
  Transmission Date: 20100115
  Serious: Yes (Hospitalization, Other)
  Sender: FDA-Public Use
  Company Number: US-PURDUE-USA-2009-0038943

PATIENT
  Sex: Female

DRUGS (9)
  1. OXYCONTIN [Suspect]
     Indication: BACK PAIN
     Dosage: 80 MG, BID
     Dates: start: 20010320, end: 20040526
  2. CELEXA [Concomitant]
     Dosage: 60 MG, DAILY
  3. TRAZODONE HCL [Concomitant]
     Dosage: 100 MG, NOCTE
  4. HYDROCHLOROTHIAZIDE [Concomitant]
     Dosage: 25 MG, DAILY
  5. TOPIRAMATE [Concomitant]
     Dosage: 225 MG, DAILY
  6. NEXIUM [Concomitant]
     Dosage: 40 MG, DAILY
  7. DARVOCET-N 100 [Concomitant]
     Dosage: 10 MG, TID
  8. SKELAXIN [Concomitant]
     Dosage: 40 MG, BID
  9. PREMARIN [Concomitant]
     Dosage: 1.25 MG, DAILY

REACTIONS (9)
  - AMNESIA [None]
  - ASTHENIA [None]
  - CONVULSION [None]
  - DRUG DEPENDENCE [None]
  - FALL [None]
  - HALLUCINATION [None]
  - HYPERSOMNIA [None]
  - RENAL DISORDER [None]
  - SPEECH DISORDER [None]
